FAERS Safety Report 8312119-3 (Version None)
Quarter: 2012Q2

REPORT INFORMATION
  Report Type: 
  Country: None (occurrence: None)
  Receive Date: 20120425
  Receipt Date: 20110808
  Transmission Date: 20120825
  Serious: Yes (Other)
  Sender: FDA-Public Use
  Company Number: US-TEVA-US017122

PATIENT
  Sex: Male
  Weight: 104 kg

DRUGS (1)
  1. PROVIGIL [Suspect]
     Indication: NARCOLEPSY
     Dosage: 200 MILLIGRAM;
     Route: 048
     Dates: start: 20050701

REACTIONS (7)
  - IRRITABILITY [None]
  - ANXIETY [None]
  - PARANOIA [None]
  - DEPRESSION [None]
  - MOOD SWINGS [None]
  - SINUSITIS [None]
  - DRY MOUTH [None]
